FAERS Safety Report 11801198 (Version 2)
Quarter: 2015Q4

REPORT INFORMATION
  Report Type: Report from Study
  Country: DE (occurrence: DE)
  Receive Date: 20151204
  Receipt Date: 20151223
  Transmission Date: 20160305
  Serious: Yes (Other)
  Sender: FDA-Public Use
  Company Number: DE-ACTAVIS-2015-17703

PATIENT
  Age: 70 Year
  Sex: Female
  Weight: 73.4 kg

DRUGS (5)
  1. LETROZOL-ACTAVIS [Suspect]
     Active Substance: LETROZOLE
     Indication: BREAST CANCER
     Dosage: 2.5 MG, DAILY
     Route: 048
     Dates: start: 20131018
  2. THYROXIN [Concomitant]
     Active Substance: LEVOTHYROXINE
     Indication: THYROID DISORDER
     Dosage: UNKNOWN
     Route: 065
     Dates: start: 2010
  3. TRAMADOL                           /00599202/ [Concomitant]
     Active Substance: TRAMADOL
     Indication: TUMOUR PAIN
     Dosage: UNKNOWN
     Route: 065
     Dates: start: 20130821, end: 20140109
  4. ZOLEDRONATE [Concomitant]
     Active Substance: ZOLEDRONIC ACID
     Indication: METASTASES TO BONE
     Dosage: UNKNOWN
     Route: 065
     Dates: start: 20130925
  5. CORTISOL                           /00028601/ [Concomitant]
     Indication: TUMOUR PAIN
     Dosage: UNKNOWN
     Route: 065
     Dates: start: 20130918, end: 20131002

REACTIONS (1)
  - Interstitial lung disease [Recovered/Resolved]

NARRATIVE: CASE EVENT DATE: 20140108
